FAERS Safety Report 15451306 (Version 1)
Quarter: 2018Q4

REPORT INFORMATION
  Report Type: Spontaneous
  Country: IN (occurrence: IN)
  Receive Date: 20181001
  Receipt Date: 20181001
  Transmission Date: 20190204
  Serious: Yes (Hospitalization, Other)
  Sender: FDA-Public Use
  Company Number: IN-MYLANLABS-2018M1069550

PATIENT
  Age: 36 Year
  Sex: Female

DRUGS (3)
  1. TOPIRAMATE. [Suspect]
     Active Substance: TOPIRAMATE
     Route: 065
  2. ELTROXIN [Concomitant]
     Active Substance: LEVOTHYROXINE
     Indication: HYPOTHYROIDISM
     Route: 065
  3. TOPIRAMATE. [Suspect]
     Active Substance: TOPIRAMATE
     Indication: MIGRAINE
     Dosage: FOR 5 DAYS
     Route: 065

REACTIONS (8)
  - Uveitis [Recovered/Resolved]
  - Acute myopia [Recovering/Resolving]
  - Vitritis [Recovering/Resolving]
  - Iris adhesions [Recovering/Resolving]
  - Angle closure glaucoma [Recovering/Resolving]
  - Choroidal effusion [Recovering/Resolving]
  - Serous retinal detachment [Recovering/Resolving]
  - Cataract [Recovering/Resolving]
